FAERS Safety Report 4744922-0 (Version None)
Quarter: 2005Q3

REPORT INFORMATION
  Report Type: 
  Country: None (occurrence: None)
  Receive Date: 20050812
  Receipt Date: 20050812
  Transmission Date: 20060218
  Serious: Yes (Other)
  Sender: FDA-Public Use
  Company Number: None

PATIENT
  Age: 43 Year
  Sex: Female
  Weight: 139.2 kg

DRUGS (2)
  1. INTERFERON 1800 ROCHE [Suspect]
     Indication: HEPATITIS C
     Dosage: 1XWEEK
     Dates: start: 20050217, end: 20050805
  2. RIBASPHERE [Suspect]
     Dosage: 4002XDAY

REACTIONS (2)
  - ANAEMIA [None]
  - FEELING ABNORMAL [None]
